FAERS Safety Report 8903429 (Version 2)
Quarter: 2013Q1

REPORT INFORMATION
  Report Type: Report from Study
  Country: JP (occurrence: JP)
  Receive Date: 20121112
  Receipt Date: 20130110
  Transmission Date: 20140127
  Serious: Yes (Other)
  Sender: FDA-Public Use
  Company Number: JP-VERTEX PHARMACEUTICAL INC.-2012-020562

PATIENT
  Age: 57 Year
  Sex: Female

DRUGS (9)
  1. VX-950 (TELAPREVIR) [Suspect]
     Indication: CHRONIC HEPATITIS C
     Dosage: 1500 MG, QD
     Route: 048
     Dates: start: 20120302, end: 20120524
  2. PEGINTRON                          /01543001/ [Suspect]
     Indication: CHRONIC HEPATITIS C
     Dosage: 1.5 ?G/KG, QW
     Route: 058
     Dates: start: 20120302, end: 20120413
  3. PEGINTRON                          /01543001/ [Suspect]
     Dosage: 0.75 ?G/KG, QW
     Route: 058
     Dates: start: 20120420, end: 20120615
  4. PEGINTRON                          /01543001/ [Suspect]
     Dosage: 1.0 ?G/KG, QW
     Route: 058
     Dates: start: 20120622, end: 20120622
  5. PEGINTRON                          /01543001/ [Suspect]
     Dosage: 0.75 ?G/KG, QW
     Route: 058
     Dates: start: 20120629, end: 20120629
  6. PEGINTRON                          /01543001/ [Suspect]
     Dosage: 1.0 ?G/KG, QW
     Route: 058
     Dates: start: 20120706, end: 20120810
  7. PEGINTRON                          /01543001/ [Suspect]
     Dosage: UNK
  8. RIBAVIRIN [Concomitant]
     Dosage: 400 MG, QD
     Route: 048
     Dates: start: 20120302, end: 20120329
  9. RIBAVIRIN [Concomitant]
     Dosage: 200 MG, QD
     Route: 048
     Dates: start: 20120330, end: 20120817

REACTIONS (2)
  - White blood cell count decreased [Recovered/Resolved]
  - Neutrophil count decreased [Recovered/Resolved]
